FAERS Safety Report 5849303-4 (Version None)
Quarter: 2008Q3

REPORT INFORMATION
  Report Type: 
  Country: None (occurrence: None)
  Receive Date: 20080815
  Receipt Date: 20080807
  Transmission Date: 20090109
  Serious: Yes (Other)
  Sender: FDA-Public Use
  Company Number: 2008AL009021

PATIENT
  Age: 76 Year
  Sex: Female
  Weight: 60.3284 kg

DRUGS (1)
  1. DIGOXIN [Suspect]
     Indication: HYPERTENSION
     Dosage: 0.25MG, DAILY, PO
     Route: 048
     Dates: start: 20080501, end: 20080526

REACTIONS (13)
  - ACTIVITIES OF DAILY LIVING IMPAIRED [None]
  - ASTHENIA [None]
  - BLOOD PRESSURE INCREASED [None]
  - CARDIAC FLUTTER [None]
  - CHEST PAIN [None]
  - DISCOMFORT [None]
  - DYSPHAGIA [None]
  - DYSPNOEA [None]
  - FATIGUE [None]
  - FEELING ABNORMAL [None]
  - GASTROINTESTINAL INFLAMMATION [None]
  - HEART RATE INCREASED [None]
  - INFECTION [None]
